FAERS Safety Report 13986138 (Version 2)
Quarter: 2017Q4

REPORT INFORMATION
  Report Type: Report from Study
  Country: BR (occurrence: BR)
  Receive Date: 20170919
  Receipt Date: 20171018
  Transmission Date: 20180321
  Serious: Yes (Hospitalization, Other)
  Sender: FDA-Public Use
  Company Number: PHHY2017BR135516

PATIENT
  Sex: Male
  Weight: 36 kg

DRUGS (3)
  1. EXJADE [Suspect]
     Active Substance: DEFERASIROX
     Indication: SICKLE CELL ANAEMIA
     Dosage: 2 DF, QD
     Route: 048
  2. HYDROXYUREA. [Concomitant]
     Active Substance: HYDROXYUREA
     Indication: SICKLE CELL ANAEMIA
     Dosage: ONE TABLET ONE DAY AND TWO TABLETS OTHER DAY
     Route: 048
  3. FOLIC ACID. [Concomitant]
     Active Substance: FOLIC ACID
     Indication: SICKLE CELL ANAEMIA
     Dosage: 1 DF, QD
     Route: 048

REACTIONS (7)
  - Renal failure [Recovered/Resolved]
  - Cardiac arrest [Recovered/Resolved]
  - Osteonecrosis [Unknown]
  - Arthralgia [Recovering/Resolving]
  - Bacterial infection [Recovered/Resolved]
  - Gait disturbance [Unknown]
  - Serum ferritin increased [Unknown]
